FAERS Safety Report 12170748 (Version 1)
Quarter: 2016Q1

REPORT INFORMATION
  Report Type: Spontaneous
  Country: US (occurrence: None)
  Receive Date: 20160310
  Receipt Date: 20160310
  Transmission Date: 20160526
  Serious: Yes (Life-Threatening, Hospitalization, Disabling)
  Sender: FDA-Public Use
  Company Number: None

PATIENT
  Age: 42 Year
  Sex: Female
  Weight: 58.97 kg

DRUGS (4)
  1. LYRICA [Suspect]
     Active Substance: PREGABALIN
     Indication: PRODUCT USED FOR UNKNOWN INDICATION
     Dosage: 300MG  2XDAY
     Route: 048
     Dates: start: 20151115, end: 20160205
  2. PERCOCET [Concomitant]
     Active Substance: ACETAMINOPHEN\OXYCODONE HYDROCHLORIDE
  3. ATIVAN [Concomitant]
     Active Substance: LORAZEPAM
  4. ADDERALL [Concomitant]
     Active Substance: AMPHETAMINE ASPARTATE\AMPHETAMINE SULFATE\DEXTROAMPHETAMINE SACCHARATE\DEXTROAMPHETAMINE SULFATE

REACTIONS (17)
  - Speech disorder [None]
  - Diplopia [None]
  - Anger [None]
  - Suicidal ideation [None]
  - Neck pain [None]
  - Dysphonia [None]
  - Vision blurred [None]
  - Nightmare [None]
  - Hypertension [None]
  - Angioedema [None]
  - Nervousness [None]
  - Disturbance in attention [None]
  - Hypoacusis [None]
  - Crying [None]
  - Headache [None]
  - Irritability [None]
  - Back pain [None]

NARRATIVE: CASE EVENT DATE: 20160128
